FAERS Safety Report 18250774 (Version 1)
Quarter: 2020Q3

REPORT INFORMATION
  Report Type: Spontaneous
  Country: DE (occurrence: DE)
  Receive Date: 20200909
  Receipt Date: 20200909
  Transmission Date: 20201103
  Serious: Yes (Hospitalization, Congenital Anomaly)
  Sender: FDA-Public Use
  Company Number: DE-ANIPHARMA-2020-DE-000196

PATIENT
  Age: 1 Day
  Sex: Female
  Weight: 2 kg

DRUGS (2)
  1. CANDESARTAN CILEXETIL. [Suspect]
     Active Substance: CANDESARTAN CILEXETIL
     Indication: EXPOSURE DURING PREGNANCY
     Dosage: 16 MG DAILY
     Route: 050
     Dates: start: 20190725, end: 20191128
  2. BISOHEXAL [Suspect]
     Active Substance: BISOPROLOL FUMARATE
     Dosage: 2.5MG DAILY
     Route: 050
     Dates: start: 20190725, end: 20191128

REACTIONS (8)
  - Foetal exposure during pregnancy [Unknown]
  - Renal fusion anomaly [Not Recovered/Not Resolved]
  - Opisthotonus [Not Recovered/Not Resolved]
  - Pyelocaliectasis [Not Recovered/Not Resolved]
  - Hypoxic-ischaemic encephalopathy [Not Recovered/Not Resolved]
  - Hypertonia neonatal [Not Recovered/Not Resolved]
  - Seizure [Not Recovered/Not Resolved]
  - Hypertension neonatal [Recovered/Resolved with Sequelae]

NARRATIVE: CASE EVENT DATE: 20200405
